FAERS Safety Report 14634111 (Version 1)
Quarter: 2018Q1

REPORT INFORMATION
  Report Type: Spontaneous
  Country: BR (occurrence: BR)
  Receive Date: 20180314
  Receipt Date: 20180314
  Transmission Date: 20180509
  Serious: Yes (Hospitalization)
  Sender: FDA-Public Use
  Company Number: BR-ROCHE-1272290

PATIENT
  Age: 49 Year
  Sex: Male
  Weight: 55 kg

DRUGS (4)
  1. DIAZEPAM. [Concomitant]
     Active Substance: DIAZEPAM
     Indication: NERVOUSNESS
     Dosage: IN THE LUNCH TIME
     Route: 048
  2. RIVOTRIL [Suspect]
     Active Substance: CLONAZEPAM
     Indication: PANIC DISORDER
     Dosage: SUBLINGUAL TABLETS IN THE EVENINGS
     Route: 048
     Dates: start: 20130905
  3. RIVOTRIL [Suspect]
     Active Substance: CLONAZEPAM
     Dosage: SUBLINGUAL TABLETS
     Route: 048
  4. DIAZEPAM. [Concomitant]
     Active Substance: DIAZEPAM
     Indication: DIZZINESS

REACTIONS (2)
  - Insomnia [Recovered/Resolved]
  - Aortic valve disease [Unknown]

NARRATIVE: CASE EVENT DATE: 20130905
